FAERS Safety Report 9996131 (Version 1)
Quarter: 2014Q1

REPORT INFORMATION
  Report Type: Spontaneous
  Country: US (occurrence: None)
  Receive Date: 20140228
  Receipt Date: 20140228
  Transmission Date: 20141002
  Serious: Yes (Other)
  Sender: FDA-Public Use
  Company Number: US-JNJFOC-2013011109

PATIENT
  Age: 55 Year
  Sex: Female
  Weight: 54.4 kg

DRUGS (3)
  1. IBUPROFEN [Suspect]
     Indication: MIGRAINE
     Dosage: 800 MG, IN 1 DAY, UNKNOWN
  2. TOPIRAMATE (TOPIRAMATE) UNSPECIFIED [Concomitant]
  3. KEPPRA (LEVETIRACETAM) TABLET [Concomitant]

REACTIONS (2)
  - Gastric ulcer [None]
  - Expired drug administered [None]
